FAERS Safety Report 9096238 (Version 2)
Quarter: 2013Q1

REPORT INFORMATION
  Report Type: Spontaneous
  Country: DE (occurrence: DE)
  Receive Date: 20130207
  Receipt Date: 20130220
  Transmission Date: 20140127
  Serious: Yes (Hospitalization)
  Sender: FDA-Public Use
  Company Number: DE-VERTEX PHARMACEUTICALS INC.-2013-001713

PATIENT
  Sex: Female

DRUGS (6)
  1. INCIVO [Suspect]
     Indication: HEPATITIS C
     Route: 048
  2. PEGASYS [Suspect]
     Indication: HEPATITIS C
     Dosage: DOSAGE FORM: UNSPECIFIED
     Route: 058
     Dates: start: 20120222, end: 20121101
  3. COPEGUS [Suspect]
     Indication: HEPATITIS C
     Dosage: DOSAGE FORM: UNKNOWN
     Route: 048
     Dates: start: 20121018, end: 20121101
  4. BISOPROLOL [Concomitant]
     Indication: HYPERTENSION
     Dosage: DOSAGE FORM: UNSPECIFIED
     Route: 048
  5. L-THYROXIN [Concomitant]
     Indication: HYPERTHYROIDISM
     Dosage: DOSAGE FORM: UNSPECIFIED
     Route: 048
  6. L-THYROXIN [Concomitant]
     Indication: HYPOTHYROIDISM

REACTIONS (1)
  - Interstitial lung disease [Recovered/Resolved]
